FAERS Safety Report 15158474 (Version 1)
Quarter: 2018Q3

REPORT INFORMATION
  Report Type: Spontaneous
  Country: US (occurrence: US)
  Receive Date: 20180620
  Receipt Date: 20180620
  Transmission Date: 20181010
  Serious: Yes (Hospitalization)
  Sender: FDA-Public Use
  Company Number: None

PATIENT
  Age: 2 Year
  Sex: Male
  Weight: 14.4 kg

DRUGS (1)
  1. ETOPOSIDE. [Suspect]
     Active Substance: ETOPOSIDE
     Indication: NEUROBLASTOMA
     Route: 042
     Dates: start: 20180510, end: 20180510

REACTIONS (5)
  - Vomiting [None]
  - Lip swelling [None]
  - Throat tightness [None]
  - Cyanosis [None]
  - Cough [None]

NARRATIVE: CASE EVENT DATE: 20180510
